FAERS Safety Report 12944778 (Version 1)
Quarter: 2016Q4

REPORT INFORMATION
  Report Type: Spontaneous
  Country: US (occurrence: US)
  Receive Date: 20161115
  Receipt Date: 20161115
  Transmission Date: 20170207
  Serious: Yes (Death)
  Sender: FDA-Public Use
  Company Number: None

PATIENT
  Age: 50 Year
  Sex: Female

DRUGS (3)
  1. FRAGMIN [Suspect]
     Active Substance: DALTEPARIN SODIUM
     Indication: PULMONARY EMBOLISM
     Route: 058
     Dates: start: 20160701, end: 20160923
  2. LANTUS [Concomitant]
     Active Substance: INSULIN GLARGINE
  3. NEUROTIN [Concomitant]
     Active Substance: GABAPENTIN

REACTIONS (1)
  - Death [None]
